FAERS Safety Report 19074572 (Version 1)
Quarter: 2021Q1

REPORT INFORMATION
  Report Type: Report from Study
  Country: US (occurrence: US)
  Receive Date: 20210330
  Receipt Date: 20210330
  Transmission Date: 20210420
  Serious: Yes (Hospitalization, Other)
  Sender: FDA-Public Use
  Company Number: US-BIOVITRUM-2021US3061

PATIENT
  Age: 20 Year
  Sex: Female

DRUGS (1)
  1. KINERET [Suspect]
     Active Substance: ANAKINRA
     Indication: PERICARDIAL DISEASE
     Route: 058
     Dates: start: 20210303

REACTIONS (3)
  - Off label use [Unknown]
  - Systemic lupus erythematosus [Unknown]
  - Device related infection [Unknown]

NARRATIVE: CASE EVENT DATE: 20210303
